FAERS Safety Report 16076018 (Version 1)
Quarter: 2019Q1

REPORT INFORMATION
  Report Type: Spontaneous
  Country: US (occurrence: US)
  Receive Date: 20190315
  Receipt Date: 20190315
  Transmission Date: 20190418
  Serious: Yes (Hospitalization, Other)
  Sender: FDA-Public Use
  Company Number: US-MACLEODS PHARMACEUTICALS US LTD-MAC2019020477

PATIENT

DRUGS (2)
  1. PROPRANOLOL [Concomitant]
     Active Substance: PROPRANOLOL HYDROCHLORIDE
     Indication: MIGRAINE
     Dosage: UNK
     Route: 065
  2. RIZATRIPTAN. [Suspect]
     Active Substance: RIZATRIPTAN
     Indication: MIGRAINE
     Dosage: UNK, ON ADJUSTED DOSE
     Route: 065

REACTIONS (5)
  - Gastrointestinal necrosis [Recovered/Resolved]
  - Intestinal ulcer [Recovered/Resolved]
  - Pneumatosis [Recovered/Resolved]
  - Intestinal infarction [Recovered/Resolved]
  - Intestinal ischaemia [Recovered/Resolved]
